FAERS Safety Report 24548862 (Version 1)
Quarter: 2024Q4

REPORT INFORMATION
  Report Type: Spontaneous
  Country: GR (occurrence: GR)
  Receive Date: 20241025
  Receipt Date: 20241025
  Transmission Date: 20250115
  Serious: Yes (Death)
  Sender: GENMAB
  Company Number: GR-ABBVIE-5976924

PATIENT
  Age: 72 Year
  Sex: Female

DRUGS (1)
  1. EPCORITAMAB [Suspect]
     Active Substance: EPCORITAMAB
     Indication: Diffuse large B-cell lymphoma
     Dosage: 48 MILLIGRAM LAST DOSE ON 09 OCT 2024
     Route: 058
     Dates: start: 202402, end: 20241009

REACTIONS (2)
  - Respiratory failure [Fatal]
  - COVID-19 [Unknown]

NARRATIVE: CASE EVENT DATE: 20240101
